FAERS Safety Report 4962557-1 (Version None)
Quarter: 2006Q1

REPORT INFORMATION
  Report Type: 
  Country: None (occurrence: None)
  Receive Date: 20060201
  Receipt Date: 20051118
  Transmission Date: 20060701
  Serious: No
  Sender: FDA-Public Use
  Company Number: 2005PV004571

PATIENT
  Age: 64 Year
  Sex: Female

DRUGS (4)
  1. BYETTA [Suspect]
     Indication: DIABETES MELLITUS NON-INSULIN-DEPENDENT
     Dosage: SEE IMAGE
     Route: 058
     Dates: start: 20051105, end: 20051107
  2. BYETTA [Suspect]
     Indication: DIABETES MELLITUS NON-INSULIN-DEPENDENT
     Dosage: SEE IMAGE
     Route: 058
     Dates: start: 20051109
  3. METFORMIN [Concomitant]
  4. PRANDIN [Concomitant]

REACTIONS (17)
  - ABDOMINAL DISTENSION [None]
  - ANOREXIA [None]
  - BLOOD GLUCOSE DECREASED [None]
  - DIARRHOEA [None]
  - DIZZINESS [None]
  - DYSPEPSIA [None]
  - ERUCTATION [None]
  - FATIGUE [None]
  - FEELING JITTERY [None]
  - HAEMATEMESIS [None]
  - HEADACHE [None]
  - HYPERHIDROSIS [None]
  - INJECTION SITE BRUISING [None]
  - NAUSEA [None]
  - SALIVA ALTERED [None]
  - TREMOR [None]
  - VOMITING [None]
